FAERS Safety Report 4718735-X (Version None)
Quarter: 2005Q3

REPORT INFORMATION
  Report Type: 
  Country: None (occurrence: None)
  Receive Date: 20050719
  Receipt Date: 20050701
  Transmission Date: 20060218
  Serious: Yes (Death, Life-Threatening, Hospitalization)
  Sender: FDA-Public Use
  Company Number: 216019

PATIENT
  Age: 57 Year

DRUGS (4)
  1. AVASTIN [Suspect]
     Indication: PANCREATIC CARCINOMA
     Dosage: 10 MG/KG, DAYS 1+15, INTRAVENOUS
     Route: 042
     Dates: start: 20050126, end: 20050126
  2. CETUXIMAB (CETUXIMAB) [Suspect]
     Indication: PANCREATIC CARCINOMA
     Dosage: SEE IMAGE, INTRAVENOUS
     Route: 042
     Dates: start: 20050126, end: 20050302
  3. CETUXIMAB (CETUXIMAB) [Suspect]
     Indication: PANCREATIC CARCINOMA
     Dosage: SEE IMAGE, INTRAVENOUS
     Route: 042
     Dates: end: 20050302
  4. GEMCITABINE (GEMCITABINE HYDROCHLORIDE) [Suspect]
     Indication: PANCREATIC CARCINOMA
     Dosage: 1000 MG/2, DAYS 1+15, INTRAVENOUS
     Route: 042
     Dates: start: 20050126

REACTIONS (5)
  - DISEASE PROGRESSION [None]
  - HAEMOGLOBIN DECREASED [None]
  - INTESTINAL ISCHAEMIA [None]
  - RECTAL HAEMORRHAGE [None]
  - VISCERAL ARTERIAL ISCHAEMIA [None]
